FAERS Safety Report 7651900-0 (Version None)
Quarter: 2011Q3

REPORT INFORMATION
  Report Type: 
  Country: None (occurrence: None)
  Receive Date: 20110803
  Receipt Date: 20110726
  Transmission Date: 20111222
  Serious: No
  Sender: FDA-Public Use
  Company Number: US-BIOGENIDEC-2011BI018895

PATIENT
  Age: 51 Year
  Sex: Female

DRUGS (3)
  1. CITALOPRAM [Concomitant]
     Indication: DEPRESSION
  2. TYSABRI [Suspect]
     Indication: MULTIPLE SCLEROSIS
     Route: 042
     Dates: start: 20110421
  3. AVONEX [Concomitant]
     Indication: MULTIPLE SCLEROSIS
     Route: 030
     Dates: start: 20020215

REACTIONS (6)
  - ASTHENIA [None]
  - INSOMNIA [None]
  - ANXIETY [None]
  - BURNING SENSATION [None]
  - MIDDLE INSOMNIA [None]
  - STRESS [None]
